FAERS Safety Report 11969899 (Version 1)
Quarter: 2016Q1

REPORT INFORMATION
  Report Type: Spontaneous
  Country: US (occurrence: US)
  Receive Date: 20160128
  Receipt Date: 20160128
  Transmission Date: 20160526
  Serious: No
  Sender: FDA-Public Use
  Company Number: US-BRACCO-011835

PATIENT

DRUGS (2)
  1. DEXTROSE W/SODIUM CHLORIDE [Concomitant]
     Active Substance: DEXTROSE\SODIUM CHLORIDE
     Dosage: USED AS ACARDIOGEN-82 ELUTION ELUANT
     Route: 042
     Dates: start: 20150307, end: 20150307
  2. CARDIOGEN-82 [Suspect]
     Active Substance: RUBIDIUM CHLORIDE RB-82
     Indication: CARDIAC STRESS TEST
     Route: 042
     Dates: start: 20150308, end: 20150308

REACTIONS (2)
  - No adverse event [Unknown]
  - Wrong technique in product usage process [Unknown]

NARRATIVE: CASE EVENT DATE: 20150307
